FAERS Safety Report 14802816 (Version 1)
Quarter: 2018Q2

REPORT INFORMATION
  Report Type: Spontaneous
  Country: FR (occurrence: FR)
  Receive Date: 20180424
  Receipt Date: 20180424
  Transmission Date: 20180711
  Serious: Yes (Death, Congenital Anomaly)
  Sender: FDA-Public Use
  Company Number: FR-PFIZER INC-2018162776

PATIENT
  Age: 1 Day
  Sex: Male
  Weight: 3.11 kg

DRUGS (3)
  1. ABILIFY [Suspect]
     Active Substance: ARIPIPRAZOLE
     Indication: SCHIZOPHRENIA
     Route: 064
  2. XANAX [Suspect]
     Active Substance: ALPRAZOLAM
     Dosage: UNK
     Route: 064
  3. ABILIFY MAINTENA [Suspect]
     Active Substance: ARIPIPRAZOLE
     Indication: SCHIZOPHRENIA
     Dosage: UNK
     Route: 064

REACTIONS (4)
  - Cardiac valve sclerosis [Fatal]
  - Endocardial fibrosis [Fatal]
  - Maternal exposure during pregnancy [Fatal]
  - Ventricular hypokinesia [Fatal]

NARRATIVE: CASE EVENT DATE: 20170106
